FAERS Safety Report 7268340-9 (Version None)
Quarter: 2011Q1

REPORT INFORMATION
  Report Type: 
  Country: None (occurrence: None)
  Receive Date: 20110201
  Receipt Date: 20110121
  Transmission Date: 20110831
  Serious: Yes (Other)
  Sender: FDA-Public Use
  Company Number: US-BAYER-2011-007884

PATIENT
  Sex: Male
  Weight: 78 kg

DRUGS (11)
  1. VITAMIN D [Concomitant]
  2. ENALAPRIL MALEATE [Concomitant]
  3. FUROSEMIDE [Concomitant]
  4. VITAMIN B-12 [Concomitant]
  5. FISH OIL [Concomitant]
  6. PRAVASTATIN [Concomitant]
  7. ASCORBIC ACID [Concomitant]
  8. ALEVE (CAPLET) [Suspect]
     Indication: PAIN
     Dosage: 220 MG, BID
  9. KLOR-CON [Concomitant]
  10. CALTRATE [CALCIUM CARBONATE,COLECALCIFEROL] [Concomitant]
  11. CENTRUM [Concomitant]

REACTIONS (3)
  - BLEPHAROSPASM [None]
  - VISION BLURRED [None]
  - DIPLOPIA [None]
